FAERS Safety Report 19821636 (Version 1)
Quarter: 2021Q3

REPORT INFORMATION
  Report Type: Spontaneous
  Country: GB (occurrence: GB)
  Receive Date: 20210913
  Receipt Date: 20210913
  Transmission Date: 20211014
  Serious: Yes (Other)
  Sender: FDA-Public Use
  Company Number: GB-PFIZER INC-202101064558

PATIENT
  Age: 70 Year
  Sex: Female
  Weight: 90 kg

DRUGS (1)
  1. KETAMINE HCL [Suspect]
     Active Substance: KETAMINE HYDROCHLORIDE
     Indication: SEDATIVE THERAPY
     Dosage: 20 MG
     Route: 042

REACTIONS (5)
  - Anxiety [Recovered/Resolved]
  - Stridor [Recovered/Resolved]
  - Muscle spasms [Recovered/Resolved]
  - Oxygen saturation decreased [Recovered/Resolved]
  - Laryngospasm [Recovered/Resolved]
